FAERS Safety Report 6534462-0 (Version None)
Quarter: 2010Q1

REPORT INFORMATION
  Report Type: 
  Country: None (occurrence: None)
  Receive Date: 20100112
  Receipt Date: 20100104
  Transmission Date: 20100710
  Serious: Yes (Life-Threatening, Hospitalization)
  Sender: FDA-Public Use
  Company Number: US-CELGENEUS-163-C5013-06111040

PATIENT
  Sex: Female
  Weight: 74.002 kg

DRUGS (3)
  1. CC-5013 [Suspect]
     Route: 048
     Dates: start: 20061005
  2. CC-5013 [Suspect]
     Route: 048
     Dates: start: 20051026, end: 20060804
  3. PLACEBO FOR CC-5013 [Suspect]
     Route: 048

REACTIONS (2)
  - HAEMOLYTIC ANAEMIA [None]
  - THROMBOTIC THROMBOCYTOPENIC PURPURA [None]
